FAERS Safety Report 6425487-4 (Version None)
Quarter: 2009Q4

REPORT INFORMATION
  Report Type: 
  Country: None (occurrence: None)
  Receive Date: 20091103
  Receipt Date: 20091023
  Transmission Date: 20100525
  Serious: Yes (Other)
  Sender: FDA-Public Use
  Company Number: GB-PFIZER INC-2008069434

PATIENT
  Age: 21 Year
  Sex: Male
  Weight: 76 kg

DRUGS (1)
  1. CHAMPIX [Suspect]
     Indication: SMOKING CESSATION THERAPY
     Route: 048
     Dates: start: 20080626, end: 20080728

REACTIONS (3)
  - ALCOHOL USE [None]
  - INTENTIONAL SELF-INJURY [None]
  - SKIN LACERATION [None]
